FAERS Safety Report 5009452-X (Version None)
Quarter: 2006Q2

REPORT INFORMATION
  Report Type: 
  Country: None (occurrence: None)
  Receive Date: 20060522
  Receipt Date: 20060509
  Transmission Date: 20061013
  Serious: Yes (Hospitalization, Other)
  Sender: FDA-Public Use
  Company Number: 2006062396

PATIENT
  Age: 44 Year
  Sex: Male
  Weight: 99.7913 kg

DRUGS (2)
  1. CELEBREX [Suspect]
     Indication: ARTHRALGIA
     Dates: start: 20020806, end: 20040930
  2. CELEBREX [Suspect]
     Indication: OSTEOARTHRITIS
     Dates: start: 20020806, end: 20040930

REACTIONS (16)
  - AMNESIA [None]
  - ARRHYTHMIA [None]
  - CARDIAC FAILURE [None]
  - CHEST PAIN [None]
  - CORONARY ARTERY OCCLUSION [None]
  - DISCOMFORT [None]
  - FEAR [None]
  - INSOMNIA [None]
  - MYOCARDIAL INFARCTION [None]
  - NIGHTMARE [None]
  - PACEMAKER COMPLICATION [None]
  - PANIC ATTACK [None]
  - SCAR [None]
  - SEXUAL DYSFUNCTION [None]
  - STRESS [None]
  - VENTRICULAR FIBRILLATION [None]
